FAERS Safety Report 7057442-8 (Version None)
Quarter: 2010Q4

REPORT INFORMATION
  Report Type: 
  Country: None (occurrence: None)
  Receive Date: 20101022
  Receipt Date: 20101012
  Transmission Date: 20110411
  Serious: Yes (Other)
  Sender: FDA-Public Use
  Company Number: US-ROCHE-518444

PATIENT
  Sex: Female

DRUGS (6)
  1. PEGINTERFERON ALFA-2A [Suspect]
     Indication: HEPATITIS C
     Dosage: FORM: PFS
     Route: 058
     Dates: start: 20070521
  2. PEGINTERFERON ALFA-2A [Suspect]
     Dosage: DOSE REDUCED AT AN UNSPECIFIED DATE. FORMULATION: PREFILLED SYRINGE
     Route: 058
  3. PEGINTERFERON ALFA-2A [Suspect]
     Route: 058
     Dates: end: 20101008
  4. RIBAVIRIN [Suspect]
     Indication: HEPATITIS C
     Dosage: FREQUENCY REPORTED AS: 3 TABLETS TWICE A DAY
     Route: 065
     Dates: start: 20070521
  5. RIBAVIRIN [Suspect]
     Dosage: REPORTS BEING ON AND OFF THE PILLS.
     Route: 065
     Dates: end: 20070901
  6. XANAX [Concomitant]
     Dosage: DOSAGE REPORTED AS: AT NIGHT AS NEEDED.

REACTIONS (11)
  - BLOOD DISORDER [None]
  - BLOOD POTASSIUM INCREASED [None]
  - CARDIAC DISORDER [None]
  - DEHYDRATION [None]
  - FULL BLOOD COUNT DECREASED [None]
  - LOOSE TOOTH [None]
  - MEMORY IMPAIRMENT [None]
  - RASH PRURITIC [None]
  - STEVENS-JOHNSON SYNDROME [None]
  - THYROID DISORDER [None]
  - VITAMIN D INCREASED [None]
